FAERS Safety Report 6339057-X (Version None)
Quarter: 2009Q3

REPORT INFORMATION
  Report Type: 
  Country: None (occurrence: None)
  Receive Date: 20090903
  Receipt Date: 20090902
  Transmission Date: 20100115
  Serious: Yes (Death, Hospitalization)
  Sender: FDA-Public Use
  Company Number: US-AMGEN-US337962

PATIENT
  Sex: Female
  Weight: 68.1 kg

DRUGS (3)
  1. NPLATE [Suspect]
     Indication: IDIOPATHIC THROMBOCYTOPENIC PURPURA
     Route: 065
     Dates: start: 20081222, end: 20090112
  2. IMMUNOGLOBULINS [Concomitant]
     Route: 042
  3. UNSPECIFIED ANTINEOPLASTIC AGENT [Concomitant]

REACTIONS (7)
  - DYSPNOEA [None]
  - HEPATIC ENCEPHALOPATHY [None]
  - HEPATIC FAILURE [None]
  - PLEURAL EFFUSION [None]
  - RENAL FAILURE [None]
  - SOMNOLENCE [None]
  - VENOOCCLUSIVE DISEASE [None]
